FAERS Safety Report 5041608-2 (Version None)
Quarter: 2006Q2

REPORT INFORMATION
  Report Type: 
  Country: None (occurrence: None)
  Receive Date: 20060628
  Receipt Date: 20060622
  Transmission Date: 20061013
  Serious: Yes (Other)
  Sender: FDA-Public Use
  Company Number: GBWYE972412SEP05

PATIENT
  Age: 54 Year
  Sex: Male

DRUGS (7)
  1. RAPAMUNE [Suspect]
     Indication: IMMUNOSUPPRESSION
     Dosage: 4 MG 1X PER 1 DAY ORAL
     Route: 048
     Dates: start: 20050415, end: 20050911
  2. SILDENAFIL CITRATE [Concomitant]
  3. FUROSEMIDE [Concomitant]
  4. ATORVASTATIN CALCIUM [Concomitant]
  5. RANITIDINE [Concomitant]
  6. AMLODIPINE [Concomitant]
  7. MYCOPHENOLATE MOFETIL [Concomitant]

REACTIONS (1)
  - KIDNEY TRANSPLANT REJECTION [None]
